FAERS Safety Report 15943651 (Version 1)
Quarter: 2019Q1

REPORT INFORMATION
  Report Type: Spontaneous
  Country: AU (occurrence: AU)
  Receive Date: 20190210
  Receipt Date: 20190210
  Transmission Date: 20190417
  Serious: Yes (Other)
  Sender: FDA-Public Use
  Company Number: ALCN2017AU004124

PATIENT
  Age: 30 Year
  Sex: Male

DRUGS (8)
  1. PREDNISOLONE. [Concomitant]
     Active Substance: PREDNISOLONE
     Indication: SARCOIDOSIS
     Dosage: 80 MG, QD
     Route: 048
  2. INFLIXIMAB [Concomitant]
     Active Substance: INFLIXIMAB
     Dosage: 1 UG/LITRE
     Route: 065
  3. PREDNISOLONE. [Concomitant]
     Active Substance: PREDNISOLONE
     Dosage: 10 MG, QD
     Route: 048
  4. MYCOPHENOLATE [Concomitant]
     Active Substance: MYCOPHENOLIC ACID
     Indication: SARCOIDOSIS
     Dosage: 750 MG, BID
     Route: 048
  5. INFLIXIMAB [Concomitant]
     Active Substance: INFLIXIMAB
     Indication: SARCOIDOSIS
     Dosage: 6-WEEKLY
     Route: 041
  6. MYCOPHENOLIC ACID. [Concomitant]
     Active Substance: MYCOPHENOLIC ACID
     Indication: SARCOIDOSIS
     Dosage: 1500 MG, QD
     Route: 048
  7. PREDNISOLONE. [Concomitant]
     Active Substance: PREDNISOLONE
     Dosage: BELOW 50 MG
     Route: 048
  8. TRIAMCINOLONE ACETONIDE. [Suspect]
     Active Substance: TRIAMCINOLONE ACETONIDE
     Indication: CYSTOID MACULAR OEDEMA
     Dosage: 40 MG/ML, UNK
     Route: 031

REACTIONS (1)
  - Intraocular pressure increased [Unknown]
